FAERS Safety Report 6548662-7 (Version None)
Quarter: 2010Q1

REPORT INFORMATION
  Report Type: 
  Country: None (occurrence: None)
  Receive Date: 20100124
  Receipt Date: 20090929
  Transmission Date: 20100710
  Serious: No
  Sender: FDA-Public Use
  Company Number: US-ALLERGAN-0913545US

PATIENT
  Sex: Female

DRUGS (7)
  1. RESTASIS [Suspect]
     Indication: DRY EYE
     Dosage: UNK
     Route: 047
  2. GABAPENTIN [Concomitant]
     Dosage: UNK
  3. NUCYNTA [Concomitant]
  4. FELODIPINE [Concomitant]
  5. AVAPRO [Concomitant]
  6. ACTOS [Concomitant]
  7. ALPRAZOLAM [Concomitant]

REACTIONS (3)
  - EYE IRRITATION [None]
  - LACRIMATION INCREASED [None]
  - VISION BLURRED [None]
